FAERS Safety Report 8439127-6 (Version None)
Quarter: 2012Q2

REPORT INFORMATION
  Report Type: 
  Country: None (occurrence: None)
  Receive Date: 20120615
  Receipt Date: 20120605
  Transmission Date: 20120825
  Serious: Yes (Other)
  Sender: FDA-Public Use
  Company Number: US-JNJFOC-20120314071

PATIENT
  Age: 74 Year
  Sex: Male

DRUGS (1)
  1. REMICADE [Suspect]
     Indication: PRODUCT USED FOR UNKNOWN INDICATION
     Dosage: DOSE REPORTED AS ^500^  (NO UNITS)
     Route: 042
     Dates: start: 20040701

REACTIONS (2)
  - OPPORTUNISTIC INFECTION [None]
  - CELLULITIS [None]
